FAERS Safety Report 5577677-0 (Version None)
Quarter: 2007Q4

REPORT INFORMATION
  Report Type: 
  Country: None (occurrence: None)
  Receive Date: 20071231
  Receipt Date: 20071227
  Transmission Date: 20080405
  Serious: Yes (Life-Threatening, Other)
  Sender: FDA-Public Use
  Company Number: JP-BRISTOL-MYERS SQUIBB COMPANY-14026926

PATIENT
  Age: 92 Year
  Sex: Female

DRUGS (10)
  1. MAXIPIME [Suspect]
     Indication: PNEUMONIA
     Route: 041
     Dates: start: 20071218, end: 20071222
  2. THYRADIN S [Concomitant]
     Route: 048
  3. NU-LOTAN [Concomitant]
     Route: 048
  4. ASPIRIN [Concomitant]
     Route: 048
  5. RABEPRAZOLE SODIUM [Concomitant]
     Route: 048
  6. TOWARAT L [Concomitant]
     Route: 048
  7. SELBEX [Concomitant]
     Route: 048
  8. NIKORANMART [Concomitant]
     Route: 048
  9. FUROSEMIDE [Concomitant]
     Route: 048
  10. PROCAINAMIDE HCL [Concomitant]

REACTIONS (3)
  - DEPRESSED LEVEL OF CONSCIOUSNESS [None]
  - DYSKINESIA [None]
  - NERVE INJURY [None]
